FAERS Safety Report 7459686-X (Version None)
Quarter: 2011Q2

REPORT INFORMATION
  Report Type: 
  Country: None (occurrence: None)
  Receive Date: 20110505
  Receipt Date: 20110422
  Transmission Date: 20111010
  Serious: Yes (Hospitalization, Other)
  Sender: FDA-Public Use
  Company Number: US-ELI_LILLY_AND_COMPANY-US201101001436

PATIENT
  Sex: Female

DRUGS (8)
  1. FORTEO [Suspect]
     Indication: OSTEOPOROSIS
     Dosage: 20 UG, DAILY (1/D)
     Dates: start: 20101202
  2. FORTEO [Suspect]
     Dosage: 20 UG, QD
  3. CALCIUM [Concomitant]
  4. MORPHINE SULFATE [Concomitant]
  5. TYKERB [Concomitant]
  6. VITAMIN D [Concomitant]
  7. MAGNESIUM [Concomitant]
  8. HERCEPTIN [Concomitant]
     Indication: BREAST CANCER

REACTIONS (5)
  - OXYGEN SATURATION DECREASED [None]
  - LUMBAR VERTEBRAL FRACTURE [None]
  - VERTEBROPLASTY [None]
  - PAIN [None]
  - ASTHENIA [None]
